FAERS Safety Report 7361842-6 (Version None)
Quarter: 2011Q1

REPORT INFORMATION
  Report Type: 
  Country: None (occurrence: None)
  Receive Date: 20110318
  Receipt Date: 20110309
  Transmission Date: 20110831
  Serious: Yes (Other)
  Sender: FDA-Public Use
  Company Number: US-ROCHE-711086

PATIENT
  Sex: Female
  Weight: 127.9 kg

DRUGS (4)
  1. RIBAVIRIN [Suspect]
     Dosage: DIVIDED DOSES
     Route: 048
     Dates: start: 20110201
  2. RIBAVIRIN [Suspect]
     Route: 048
     Dates: start: 20110308
  3. PEGASYS [Suspect]
     Indication: HEPATITIS C
     Dosage: FORM: PRE-FILLED SYRINGE
     Route: 058
     Dates: start: 20100614
  4. RIBAVIRIN [Suspect]
     Indication: HEPATITIS C
     Dosage: DIVIDED DOSES
     Route: 048
     Dates: start: 20100614

REACTIONS (20)
  - NEPHROLITHIASIS [None]
  - ANAEMIA [None]
  - PAIN [None]
  - RHEUMATOID ARTHRITIS [None]
  - BURNING SENSATION [None]
  - HEPATOMEGALY [None]
  - DYSGEUSIA [None]
  - LOSS OF CONSCIOUSNESS [None]
  - INFLUENZA [None]
  - URINARY TRACT INFECTION [None]
  - HAEMOGLOBIN DECREASED [None]
  - RED BLOOD CELL COUNT DECREASED [None]
  - FALL [None]
  - ASTHENIA [None]
  - CHILLS [None]
  - INJECTION SITE HAEMATOMA [None]
  - CONTUSION [None]
  - BLOOD GLUCOSE ABNORMAL [None]
  - PRURITUS [None]
  - FATIGUE [None]
